FAERS Safety Report 6057828-4 (Version None)
Quarter: 2009Q1

REPORT INFORMATION
  Report Type: 
  Country: None (occurrence: None)
  Receive Date: 20090129
  Receipt Date: 20090120
  Transmission Date: 20090719
  Serious: Yes (Hospitalization)
  Sender: FDA-Public Use
  Company Number: GB-WYE-H07885809

PATIENT
  Age: 60 Year

DRUGS (3)
  1. CORDARONE [Suspect]
     Dosage: UNKNOWN
     Dates: start: 20080401
  2. CANDESARTAN [Concomitant]
  3. WARFARIN SODIUM [Concomitant]

REACTIONS (2)
  - CARDIOMYOPATHY [None]
  - SERUM FERRITIN INCREASED [None]
